FAERS Safety Report 22638313 (Version 1)
Quarter: 2023Q2

REPORT INFORMATION
  Report Type: Report from Study
  Country: JP (occurrence: JP)
  Receive Date: 20230626
  Receipt Date: 20230626
  Transmission Date: 20230722
  Serious: Yes (Other)
  Sender: FDA-Public Use
  Company Number: JP-SA-2023SA153186

PATIENT
  Age: 72 Year
  Sex: Male
  Weight: 77.4 kg

DRUGS (8)
  1. SARILUMAB [Suspect]
     Active Substance: SARILUMAB
     Indication: Rheumatoid arthritis
     Dosage: 150 MG, QOW
     Route: 058
     Dates: start: 20210330
  2. SARILUMAB [Suspect]
     Active Substance: SARILUMAB
     Dosage: UNK UNK, QOW
     Route: 058
     Dates: start: 20201027, end: 20210316
  3. METHOTREXATE [Suspect]
     Active Substance: METHOTREXATE
     Indication: Rheumatoid arthritis
     Dosage: 1 C IN THE MORNING AND 1 C IN THE EVENING ON TUESDAY
     Route: 048
     Dates: start: 20200811
  4. CELECOXIB [Concomitant]
     Active Substance: CELECOXIB
     Indication: Rheumatoid arthritis
     Dosage: BID (AFTER BREAKFAST AND AFTER EVENING MEAL)
     Route: 048
     Dates: start: 20151017
  5. FOLIC ACID [Concomitant]
     Active Substance: FOLIC ACID
     Indication: Folate deficiency
     Dosage: UNK UNK, QW (ON FEIDAYS)
     Route: 048
     Dates: start: 20190220, end: 20210708
  6. SULFAMETHOXAZOLE\TRIMETHOPRIM [Concomitant]
     Active Substance: SULFAMETHOXAZOLE\TRIMETHOPRIM
     Indication: Infection prophylaxis
     Dosage: UNK UNK, QD (MORNING)
     Route: 048
     Dates: start: 20151017
  7. LIVALO [Concomitant]
     Active Substance: PITAVASTATIN CALCIUM
     Indication: Dyslipidaemia
     Dosage: UNK UNK, QD (AFTER BREAKFAST)
     Route: 048
     Dates: start: 20180508
  8. ELDECALCITOL [Concomitant]
     Active Substance: ELDECALCITOL
     Indication: Osteoporosis prophylaxis
     Dosage: UNK UNK, QD (AFTER BREAKFAST)
     Route: 048
     Dates: start: 20210316

REACTIONS (2)
  - Bladder cancer [Recovering/Resolving]
  - Haematuria [Recovered/Resolved]

NARRATIVE: CASE EVENT DATE: 20210427
